FAERS Safety Report 17876730 (Version 2)
Quarter: 2020Q2

REPORT INFORMATION
  Report Type: Spontaneous
  Country: US (occurrence: US)
  Receive Date: 20200609
  Receipt Date: 20200615
  Transmission Date: 20200714
  Serious: No
  Sender: FDA-Public Use
  Company Number: US-SA-2020SA146262

PATIENT

DRUGS (8)
  1. EUCRISA [Concomitant]
     Active Substance: CRISABOROLE
  2. DAPSONE. [Concomitant]
     Active Substance: DAPSONE
  3. SINGULAIR [Concomitant]
     Active Substance: MONTELUKAST SODIUM
  4. TRIAMCINOLONE [Concomitant]
     Active Substance: TRIAMCINOLONE
  5. DESONIDE. [Concomitant]
     Active Substance: DESONIDE
  6. PROTOPIC [Concomitant]
     Active Substance: TACROLIMUS
  7. DUPIXENT [Suspect]
     Active Substance: DUPILUMAB
     Indication: DERMATITIS ATOPIC
     Dosage: 200 MG, QOW
     Route: 058
     Dates: start: 20190903
  8. FLONASE [Concomitant]
     Active Substance: FLUTICASONE PROPIONATE

REACTIONS (2)
  - Therapeutic response decreased [Not Recovered/Not Resolved]
  - Dermatitis atopic [Not Recovered/Not Resolved]

NARRATIVE: CASE EVENT DATE: 202005
